FAERS Safety Report 16785565 (Version 4)
Quarter: 2021Q3

REPORT INFORMATION
  Report Type: Spontaneous
  Country: JP (occurrence: JP)
  Receive Date: 20190909
  Receipt Date: 20210729
  Transmission Date: 20211014
  Serious: Yes (Hospitalization)
  Sender: FDA-Public Use
  Company Number: JP-PFIZER INC-2019368479

PATIENT
  Age: 29 Year
  Sex: Male

DRUGS (2)
  1. INFLIXIMAB [Suspect]
     Active Substance: INFLIXIMAB
     Indication: CROHN^S DISEASE
     Dosage: 5 MG/KG, UNK (EVERY EIGHT WEEKS) (FOR SEVEN YEARS) (INFUSION)
     Route: 042
  2. INFLIXIMAB [Suspect]
     Active Substance: INFLIXIMAB
     Dosage: UNK (NEXT DOSE) (INFUSION)
     Route: 042

REACTIONS (4)
  - Staphylococcal infection [Recovered/Resolved]
  - Erythema multiforme [Recovered/Resolved]
  - Drug hypersensitivity [Recovered/Resolved]
  - Folliculitis [Recovered/Resolved]
